FAERS Safety Report 15258367 (Version 1)
Quarter: 2018Q3

REPORT INFORMATION
  Report Type: Spontaneous
  Country: US (occurrence: US)
  Receive Date: 20180809
  Receipt Date: 20180809
  Transmission Date: 20181010
  Serious: Yes (Life-Threatening, Hospitalization)
  Sender: FDA-Public Use
  Company Number: US-SCIEGEN PHARMACEUTICALS INC-2018SCILIT00525

PATIENT
  Age: 36 Year
  Sex: Female

DRUGS (1)
  1. METFORMIN HYDROCHLORIDE TABLETS, USP [Suspect]
     Active Substance: METFORMIN HYDROCHLORIDE
     Indication: PRODUCT USED FOR UNKNOWN INDICATION
     Dosage: UNK
     Route: 065

REACTIONS (3)
  - Toxicity to various agents [Recovering/Resolving]
  - Shock [Recovering/Resolving]
  - Lactic acidosis [Recovering/Resolving]
